FAERS Safety Report 4409601-8 (Version None)
Quarter: 2004Q3

REPORT INFORMATION
  Report Type: 
  Country: None (occurrence: None)
  Receive Date: 20040728
  Receipt Date: 20020522
  Transmission Date: 20050211
  Serious: Yes (Hospitalization)
  Sender: FDA-Public Use
  Company Number: PHEH2002US04851

PATIENT
  Age: 59 Year
  Sex: Female
  Weight: 76 kg

DRUGS (3)
  1. SANDOSTATIN LAR [Suspect]
     Indication: DIABETIC RETINOPATHY
     Dosage: 30 MG, UNK
     Route: 030
     Dates: start: 20020205, end: 20021114
  2. REGLAN [Concomitant]
     Indication: VOMITING
     Dates: start: 20020401
  3. GLUCOVANCE [Concomitant]
     Indication: DIABETES MELLITUS NON-INSULIN-DEPENDENT
     Dates: start: 20020429

REACTIONS (8)
  - ABDOMINAL PAIN [None]
  - DEHYDRATION [None]
  - DIABETIC GASTROPARESIS [None]
  - DISEASE PROGRESSION [None]
  - DISEASE RECURRENCE [None]
  - GASTRITIS [None]
  - NAUSEA [None]
  - VOMITING [None]
